FAERS Safety Report 22121506 (Version 1)
Quarter: 2023Q1

REPORT INFORMATION
  Report Type: Spontaneous
  Country: US (occurrence: US)
  Receive Date: 20230321
  Receipt Date: 20230321
  Transmission Date: 20230418
  Serious: No
  Sender: FDA-Public Use
  Company Number: US-PFIZER INC-PV202300011312

PATIENT
  Age: 24 Year
  Sex: Male

DRUGS (1)
  1. XYNTHA [Suspect]
     Active Substance: ANTIHEMOPHILIC FACTOR, HUMAN RECOMBINANT RESIDUES 743-1636 DELETED
     Indication: Haemorrhage
     Dosage: INFUSE 3000 UNITS +/-10% FOR MINOR BLEEDS AS NEEDED AND 6000 UNITS +/-10% FOR MAJOR BLEEDS AS NEEDED
     Route: 042

REACTIONS (1)
  - Pharyngitis [Unknown]
